FAERS Safety Report 8341892-3 (Version None)
Quarter: 2012Q2

REPORT INFORMATION
  Report Type: 
  Country: None (occurrence: None)
  Receive Date: 20120507
  Receipt Date: 20120427
  Transmission Date: 20120825
  Serious: Yes (Other)
  Sender: FDA-Public Use
  Company Number: JP-VERTEX PHARMACEUTICALS INC.-AE-2012-006230

PATIENT
  Age: 56 Year
  Sex: Male

DRUGS (23)
  1. RIBAVIRIN [Concomitant]
     Route: 048
     Dates: start: 20120406
  2. FEBURIC [Concomitant]
     Route: 048
     Dates: start: 20120330
  3. TELAVIC (TELAPREVIR) [Suspect]
     Indication: HEPATITIS C
     Route: 048
     Dates: start: 20120315
  4. MOTILIUM [Concomitant]
     Route: 048
     Dates: start: 20120321, end: 20120329
  5. SELBEX [Concomitant]
     Route: 048
     Dates: start: 20120412
  6. ALLEGRA [Concomitant]
     Route: 048
     Dates: start: 20120413
  7. PAXIL [Concomitant]
     Route: 048
     Dates: start: 20120407
  8. RIBAVIRIN [Concomitant]
     Route: 048
     Dates: start: 20120315, end: 20120405
  9. PEGINTERFERON ALFA-2B [Concomitant]
     Route: 051
     Dates: start: 20120315
  10. RABEPRAZOLE SODIUM [Concomitant]
     Route: 048
     Dates: start: 20120330, end: 20120405
  11. PRIMPERAN TAB [Concomitant]
     Route: 048
     Dates: start: 20120330, end: 20120405
  12. LANSOPRAZOLE [Concomitant]
     Route: 048
     Dates: start: 20120413
  13. RINDERON-VG [Concomitant]
     Route: 051
     Dates: start: 20120420
  14. LENDORMIN [Concomitant]
     Route: 048
  15. GASMOTIN [Concomitant]
     Route: 048
     Dates: start: 20120406, end: 20120417
  16. HIRUDOID [Concomitant]
     Route: 051
     Dates: start: 20120413, end: 20120419
  17. OLOPATADINE HCL [Concomitant]
     Route: 048
     Dates: start: 20120321, end: 20120329
  18. OLOPATADINE HCL [Concomitant]
     Route: 048
     Dates: start: 20120330, end: 20120411
  19. METHYLPREDNISOLONE ACETATE [Concomitant]
     Route: 051
     Dates: start: 20120330
  20. SELBEX [Concomitant]
     Route: 048
     Dates: start: 20120330, end: 20120405
  21. SELBEX [Concomitant]
     Route: 051
     Dates: start: 20120406, end: 20120412
  22. FAMOTIDINE [Concomitant]
     Route: 048
     Dates: start: 20120406, end: 20120412
  23. MARZULENE [Concomitant]
     Route: 048
     Dates: start: 20120320, end: 20120329

REACTIONS (1)
  - RENAL IMPAIRMENT [None]
